FAERS Safety Report 7761553-9 (Version None)
Quarter: 2011Q3

REPORT INFORMATION
  Report Type: 
  Country: None (occurrence: None)
  Receive Date: 20110920
  Receipt Date: 20110912
  Transmission Date: 20111222
  Serious: No
  Sender: FDA-Public Use
  Company Number: DE-UCBSA-037932

PATIENT
  Sex: Male

DRUGS (1)
  1. KEPPRA [Suspect]
     Dosage: VIA STOMACH TUBE; DOSE INCREASED
     Route: 048

REACTIONS (1)
  - THROMBOCYTOPENIA [None]
